FAERS Safety Report 6713339-1 (Version None)
Quarter: 2010Q2

REPORT INFORMATION
  Report Type: 
  Country: None (occurrence: None)
  Receive Date: 20100504
  Receipt Date: 20071106
  Transmission Date: 20101027
  Serious: Yes (Hospitalization)
  Sender: FDA-Public Use
  Company Number: LEO-2010-00313

PATIENT
  Age: 69 Year
  Sex: Female
  Weight: 67 kg

DRUGS (2)
  1. INNOHEP [Suspect]
     Indication: ATRIAL FIBRILLATION
     Dosage: 10000 IU (1 IN 1 D),SUBCUTANEOUS
     Route: 058
     Dates: start: 20071106, end: 20071106
  2. BISOPROLOL (BISOPROLOL) (TABLETS) [Concomitant]

REACTIONS (4)
  - ALTERED STATE OF CONSCIOUSNESS [None]
  - MALAISE [None]
  - NAUSEA [None]
  - OFF LABEL USE [None]
